FAERS Safety Report 16409913 (Version 2)
Quarter: 2019Q2

REPORT INFORMATION
  Report Type: Spontaneous
  Country: US (occurrence: US)
  Receive Date: 20190610
  Receipt Date: 20190612
  Transmission Date: 20190711
  Serious: Yes (Death)
  Sender: FDA-Public Use
  Company Number: US-ITALFARMACO SPA-2067989

PATIENT
  Age: 82 Year
  Sex: Female

DRUGS (2)
  1. ADVIL [Concomitant]
     Active Substance: IBUPROFEN
  2. TIGLUTIK [Suspect]
     Active Substance: RILUZOLE
     Indication: AMYOTROPHIC LATERAL SCLEROSIS

REACTIONS (5)
  - Product use issue [Unknown]
  - Off label use [Unknown]
  - Hepatic enzyme increased [Unknown]
  - Pneumonia [Fatal]
  - Blood pressure increased [Unknown]
